FAERS Safety Report 6064848-2 (Version None)
Quarter: 2009Q1

REPORT INFORMATION
  Report Type: 
  Country: None (occurrence: None)
  Receive Date: 20090204
  Receipt Date: 20090123
  Transmission Date: 20090719
  Serious: Yes (Other)
  Sender: FDA-Public Use
  Company Number: US-ROCHE-605940

PATIENT
  Sex: Female

DRUGS (12)
  1. BONIVA [Suspect]
     Indication: OSTEOPOROSIS
     Dosage: FORM REPORTED AS: INFUSION, STRENGTH REPORTED AS: 3MG/ 3 ML
     Route: 042
     Dates: start: 20081208, end: 20081208
  2. SYNTHROID [Concomitant]
     Indication: THYROID DISORDER
     Dosage: DOSE: 1 QD
     Route: 048
  3. PREMARIN [Concomitant]
  4. DARVOCET [Concomitant]
  5. CELEBREX [Concomitant]
     Indication: ARTHRITIS
     Dosage: DOSE REPORTED AS:1 QD
     Route: 048
     Dates: end: 20081229
  6. CLONAZEPAM [Concomitant]
     Dosage: DOSE: 2 QD
     Route: 048
  7. ZOCOR [Concomitant]
     Route: 048
  8. CYMBALTA [Concomitant]
     Indication: FIBROMYALGIA
     Dosage: DOSE REPORTED AS: 1 QD
     Route: 048
     Dates: start: 20080401
  9. PERCOCET [Concomitant]
  10. METHOTREXATE [Concomitant]
     Indication: VASCULITIS
     Dosage: DOSE: 4 TABLETS PER WEEK
     Route: 048
     Dates: start: 20081022
  11. FOLIC ACID [Concomitant]
     Dosage: DOSE REPORTED AS: 2 TABLETS QD
     Route: 048
     Dates: start: 20081022
  12. CALTRATE [Concomitant]
     Indication: OSTEOPOROSIS
     Route: 048

REACTIONS (6)
  - DYSPEPSIA [None]
  - HYPERHIDROSIS [None]
  - PHARYNGEAL OEDEMA [None]
  - THROAT IRRITATION [None]
  - TONGUE DISORDER [None]
  - URTICARIA [None]
